FAERS Safety Report 16723977 (Version 2)
Quarter: 2019Q3

REPORT INFORMATION
  Report Type: Report from Study
  Country: EC (occurrence: EC)
  Receive Date: 20190821
  Receipt Date: 20190929
  Transmission Date: 20191005
  Serious: Yes (Hospitalization)
  Sender: FDA-Public Use
  Company Number: PHHY2019EC192846

PATIENT
  Age: 27 Year
  Sex: Male

DRUGS (1)
  1. SANDOSTATIN LAR DEPOT [Suspect]
     Active Substance: OCTREOTIDE ACETATE
     Indication: ACROMEGALY
     Dosage: 20 MG, QMO
     Route: 030
     Dates: start: 20151030

REACTIONS (7)
  - Abdominal pain upper [Recovering/Resolving]
  - Gait inability [Unknown]
  - Headache [Unknown]
  - Abdominal pain [Recovering/Resolving]
  - Movement disorder [Unknown]
  - Vomiting [Recovering/Resolving]
  - Cystitis noninfective [Recovering/Resolving]

NARRATIVE: CASE EVENT DATE: 20190814
